FAERS Safety Report 21518995 (Version 12)
Quarter: 2023Q2

REPORT INFORMATION
  Report Type: Report from Study
  Country: FR (occurrence: FR)
  Receive Date: 20221028
  Receipt Date: 20230523
  Transmission Date: 20230722
  Serious: Yes (Hospitalization)
  Sender: FDA-Public Use
  Company Number: FR-NOVARTISPH-NVSC2022FR237747

PATIENT
  Age: 63 Year
  Sex: Male
  Weight: 80 kg

DRUGS (5)
  1. SIPONIMOD [Suspect]
     Active Substance: SIPONIMOD
     Indication: Secondary progressive multiple sclerosis
     Dosage: 20 MG
     Route: 048
     Dates: start: 20160303, end: 20221011
  2. PLACEBO [Suspect]
     Active Substance: UNSPECIFIED INGREDIENT
     Indication: Secondary progressive multiple sclerosis
     Dosage: UNK
     Route: 048
     Dates: start: 20131205, end: 20160302
  3. TAMSULOSIN HYDROCHLORIDE [Concomitant]
     Active Substance: TAMSULOSIN HYDROCHLORIDE
     Indication: Dysuria
     Dosage: 0.4 MG
     Route: 065
     Dates: start: 20220707
  4. LYRICA [Concomitant]
     Active Substance: PREGABALIN
     Indication: Multiple sclerosis
     Dosage: 50 PLUS 75 MG
     Route: 065
     Dates: start: 20170228
  5. SERTRALINE [Concomitant]
     Active Substance: SERTRALINE HYDROCHLORIDE
     Indication: Depression
     Dosage: 25 MG
     Route: 065
     Dates: start: 20221021

REACTIONS (2)
  - Progressive multifocal leukoencephalopathy [Not Recovered/Not Resolved]
  - Immune reconstitution inflammatory syndrome [Not Recovered/Not Resolved]

NARRATIVE: CASE EVENT DATE: 20220906
